FAERS Safety Report 8380369-6 (Version None)
Quarter: 2012Q2

REPORT INFORMATION
  Report Type: 
  Country: None (occurrence: None)
  Receive Date: 20120522
  Receipt Date: 20120507
  Transmission Date: 20120825
  Serious: No
  Sender: FDA-Public Use
  Company Number: 2250051-2012-00058

PATIENT
  Sex: Female

DRUGS (1)
  1. MICRHOGAM ULTRA-FILTERED PLUS [Suspect]
     Indication: METRORRHAGIA
     Dosage: 50 UG
     Dates: start: 20120210

REACTIONS (3)
  - LARYNGEAL OEDEMA [None]
  - URTICARIA [None]
  - SWELLING FACE [None]
